FAERS Safety Report 6944474-0 (Version None)
Quarter: 2010Q3

REPORT INFORMATION
  Report Type: 
  Country: None (occurrence: None)
  Receive Date: 20100827
  Receipt Date: 20100817
  Transmission Date: 20110219
  Serious: Yes (Hospitalization)
  Sender: FDA-Public Use
  Company Number: GB-PFIZER INC-2010022760

PATIENT
  Age: 76 Year
  Sex: Male
  Weight: 89.4 kg

DRUGS (9)
  1. SUNITINIB MALATE [Suspect]
     Indication: RENAL CANCER
     Dosage: 25 MG, CYCLIC, 4 WEEKS ON, 2 WEEKS OFF
     Route: 048
     Dates: start: 20060731, end: 20100202
  2. ZOLEDRONIC ACID [Suspect]
     Dosage: 4 MG, CYCLIC
     Dates: start: 20090420, end: 20090518
  3. BENDROFLUMETHIAZIDE [Concomitant]
     Indication: HYPERTENSION
     Dosage: 2.5 MG, 1X/DAY
     Route: 048
     Dates: start: 20090101
  4. DEXAMETHASONE [Concomitant]
     Dosage: 1 MG, 1X/DAY
     Route: 048
     Dates: start: 20090101
  5. LEVOTHYROXINE [Concomitant]
     Indication: HYPOTHYROIDISM
     Dosage: 25 UG, 1X/DAY
     Route: 048
     Dates: start: 20091201
  6. CODEINE [Concomitant]
     Indication: PAIN
     Dosage: 15 MG, 4X/DAY
     Route: 048
     Dates: start: 20060101
  7. PARACETAMOL [Concomitant]
     Indication: PAIN
     Dosage: 1 G, 4X/DAY
     Route: 048
     Dates: start: 20060101
  8. OMEPRAZOLE [Concomitant]
     Dosage: 20 MG, 1X/DAY
     Route: 048
     Dates: start: 20060101
  9. AMOXICILLIN [Concomitant]
     Indication: ORAL INFECTION
     Dosage: UNK
     Route: 048
     Dates: start: 20100101, end: 20100201

REACTIONS (2)
  - DIARRHOEA [None]
  - OSTEONECROSIS OF JAW [None]
